FAERS Safety Report 25902165 (Version 2)
Quarter: 2025Q4

REPORT INFORMATION
  Report Type: Report from Study
  Country: US (occurrence: US)
  Receive Date: 20251009
  Receipt Date: 20251105
  Transmission Date: 20260117
  Serious: Yes (Hospitalization, Other)
  Sender: PFIZER
  Company Number: US-PFIZER INC-PV202500119230

PATIENT
  Age: 52 Year
  Sex: Male

DRUGS (4)
  1. BRAFTOVI [Suspect]
     Active Substance: ENCORAFENIB
     Indication: Malignant melanoma
     Dosage: 450 MG, 1X/DAY (6-75 MG CAPSULES BY MOUTH ONCE A DAY)
     Route: 048
     Dates: start: 202509
  2. BRAFTOVI [Suspect]
     Active Substance: ENCORAFENIB
     Dosage: 4-75MG CAPSULES BY MOUTH ONCE DAILY
     Route: 048
     Dates: start: 20251027
  3. MEKTOVI [Suspect]
     Active Substance: BINIMETINIB
     Indication: Malignant melanoma
     Dosage: 45 MG, 2X/DAY (3-15MG TABLETS BY MOUTH EVERY 12 HOURS)
     Route: 048
     Dates: start: 202509
  4. MEKTOVI [Suspect]
     Active Substance: BINIMETINIB
     Dosage: (2-15MG TABLETS) BY MOUTH TWICE DAILY
     Route: 048
     Dates: start: 20251027

REACTIONS (6)
  - Dyspnoea [Recovered/Resolved]
  - Fluid retention [Recovered/Resolved]
  - Heart valve operation [Recovered/Resolved]
  - Asthenia [Recovered/Resolved]
  - Cardiac disorder [Unknown]
  - Influenza like illness [Recovering/Resolving]

NARRATIVE: CASE EVENT DATE: 20251018
